FAERS Safety Report 6773015-6 (Version None)
Quarter: 2010Q2

REPORT INFORMATION
  Report Type: 
  Country: None (occurrence: None)
  Receive Date: 20100614
  Receipt Date: 20100528
  Transmission Date: 20101027
  Serious: Yes (Other)
  Sender: FDA-Public Use
  Company Number: 2010002017

PATIENT

DRUGS (2)
  1. ERLOTINIB HYDROCHLORIDE [Suspect]
     Indication: GLIOMA
     Dosage: ORAL
     Route: 048
  2. BEVACIZUMAB [Suspect]
     Indication: GLIOMA
     Dosage: (10 MG/KG, Q2W), INTRAVENOUS
     Route: 042

REACTIONS (9)
  - DIARRHOEA [None]
  - FATIGUE [None]
  - GASTRIC HAEMORRHAGE [None]
  - INTESTINAL PERFORATION [None]
  - ISCHAEMIC STROKE [None]
  - NASAL SEPTUM PERFORATION [None]
  - NAUSEA [None]
  - PULMONARY EMBOLISM [None]
  - RASH [None]
